FAERS Safety Report 9404800 (Version 1)
Quarter: 2013Q3

REPORT INFORMATION
  Report Type: Spontaneous
  Country: US (occurrence: US)
  Receive Date: 20130717
  Receipt Date: 20130717
  Transmission Date: 20140515
  Serious: Yes (Hospitalization)
  Sender: FDA-Public Use
  Company Number: US-BAYER-2013-085275

PATIENT
  Age: 36 Year
  Sex: Female

DRUGS (7)
  1. YASMIN [Suspect]
     Dosage: UNK
  2. DEMEROL [Concomitant]
     Dosage: UNK
     Dates: start: 20050321
  3. VALIUM [Concomitant]
     Dosage: UNK
     Dates: start: 20050321
  4. ACULAR [Concomitant]
     Dosage: UNK
     Route: 047
     Dates: start: 20050101
  5. OXYCODONE [Concomitant]
     Dosage: UNK
  6. ACETAMINOPHEN [Concomitant]
  7. MEPERIDINE [Concomitant]

REACTIONS (3)
  - Pulmonary embolism [Recovered/Resolved]
  - Deep vein thrombosis [None]
  - Cholelithiasis [None]
